FAERS Safety Report 9421138 (Version 1)
Quarter: 2013Q3

REPORT INFORMATION
  Report Type: Spontaneous
  Country: NL (occurrence: NL)
  Receive Date: 20130725
  Receipt Date: 20130725
  Transmission Date: 20140515
  Serious: Yes (Other)
  Sender: FDA-Public Use
  Company Number: PHHY2013NL077483

PATIENT
  Sex: Female

DRUGS (1)
  1. AMOXICILLIN SANDOZ [Suspect]
     Dosage: 500 MG, TID

REACTIONS (3)
  - Palatal oedema [Unknown]
  - Swollen tongue [Unknown]
  - Tongue disorder [Unknown]
